FAERS Safety Report 4283997-2 (Version None)
Quarter: 2004Q1

REPORT INFORMATION
  Report Type: 
  Country: None (occurrence: None)
  Receive Date: 20040130
  Receipt Date: 20040108
  Transmission Date: 20041129
  Serious: Yes (Hospitalization)
  Sender: FDA-Public Use
  Company Number: US_030393671

PATIENT
  Age: 37 Year
  Sex: Female
  Weight: 77 kg

DRUGS (10)
  1. ZYPREXA [Suspect]
     Indication: POST-TRAUMATIC STRESS DISORDER
     Dates: start: 19980420
  2. ZYPREXA [Suspect]
     Indication: PSYCHOTIC DISORDER
     Dates: start: 19980420
  3. GLUCOPHAGE [Concomitant]
  4. GLUCOTROL [Concomitant]
  5. ZANTAC [Concomitant]
  6. ZOLOFT [Concomitant]
  7. XENICAL [Concomitant]
  8. MULTI-VITAMIN [Concomitant]
  9. DIAZEPAM [Concomitant]
  10. NAVANE [Concomitant]

REACTIONS (22)
  - ACUTE SINUSITIS [None]
  - ANGINA PECTORIS [None]
  - BLOOD CALCIUM DECREASED [None]
  - BLOOD GLUCOSE INCREASED [None]
  - BLOOD UREA DECREASED [None]
  - BRONCHITIS [None]
  - DIABETES MELLITUS [None]
  - DIARRHOEA HAEMORRHAGIC [None]
  - ENDOMETRIOSIS [None]
  - GASTROOESOPHAGEAL REFLUX DISEASE [None]
  - HAEMATURIA [None]
  - HEPATIC STEATOSIS [None]
  - MEDICATION ERROR [None]
  - NAUSEA [None]
  - NEPHROLITHIASIS [None]
  - PAIN [None]
  - PLEURISY [None]
  - RENAL COLIC [None]
  - URINARY RETENTION [None]
  - VAGINAL MYCOSIS [None]
  - VOMITING [None]
  - WEIGHT INCREASED [None]
